FAERS Safety Report 19217498 (Version 2)
Quarter: 2021Q2

REPORT INFORMATION
  Report Type: Spontaneous
  Country: AE (occurrence: AE)
  Receive Date: 20210505
  Receipt Date: 20210525
  Transmission Date: 20210717
  Serious: Yes (Hospitalization)
  Sender: FDA-Public Use
  Company Number: AE-GILEAD-2021-0528035

PATIENT
  Sex: Female

DRUGS (1)
  1. AMBRISENTAN [Suspect]
     Active Substance: AMBRISENTAN
     Indication: PULMONARY ARTERIAL HYPERTENSION
     Dosage: 10 MG, 1D
     Route: 065
     Dates: start: 20191009

REACTIONS (3)
  - Pulmonary arterial pressure [Unknown]
  - COVID-19 [Recovered/Resolved]
  - Pulmonary calcification [Not Recovered/Not Resolved]

NARRATIVE: CASE EVENT DATE: 202103
